FAERS Safety Report 7243223-9 (Version None)
Quarter: 2011Q1

REPORT INFORMATION
  Report Type: 
  Country: None (occurrence: None)
  Receive Date: 20110125
  Receipt Date: 20110105
  Transmission Date: 20110831
  Serious: Yes (Hospitalization)
  Sender: FDA-Public Use
  Company Number: JP-PFIZER INC-2010174530

PATIENT
  Age: 75 Year
  Sex: Male

DRUGS (5)
  1. VOLTAREN [Suspect]
     Dosage: 50 MG, UNK
     Route: 054
     Dates: start: 20101126, end: 20101207
  2. CELECOXIB [Suspect]
     Dosage: 200 MG, UNK
     Route: 048
     Dates: start: 20101116, end: 20101207
  3. LYRICA [Suspect]
     Dosage: 75 MG, UNK
     Route: 048
     Dates: start: 20101126, end: 20101207
  4. PREDONINE [Suspect]
     Indication: AUTOIMMUNE HEPATITIS
     Dosage: 5 MG, UNK
     Route: 048
     Dates: start: 20101207
  5. MUCOSTA [Suspect]
     Dosage: 200 MG, UNK
     Route: 048
     Dates: start: 20101126, end: 20101207

REACTIONS (1)
  - LIVER DISORDER [None]
